FAERS Safety Report 7972460 (Version 3)
Quarter: 2014Q1

REPORT INFORMATION
  Report Type: Spontaneous
  Country: US (occurrence: US)
  Receive Date: 20110603
  Receipt Date: 20140204
  Transmission Date: 20141002
  Serious: Yes (Hospitalization, Other)
  Sender: FDA-Public Use
  Company Number: US-BAYER-2010-002679

PATIENT
  Age: 35 Year
  Sex: Female
  Weight: 131 kg

DRUGS (4)
  1. YASMIN [Suspect]
     Dosage: UNK
     Dates: start: 2005, end: 2010
  2. YAZ [Suspect]
     Dosage: UNK
     Dates: start: 2005, end: 2010
  3. HYDROCHLOROTHIAZIDE W/METOPROLOL [Concomitant]
     Indication: HYPERTENSION
     Dosage: UNK
     Dates: start: 1999
  4. TOPROL [Concomitant]

REACTIONS (2)
  - Gallbladder injury [None]
  - Cholecystitis acute [None]
